FAERS Safety Report 11688340 (Version 1)
Quarter: 2015Q4

REPORT INFORMATION
  Report Type: Spontaneous
  Country: CA (occurrence: CA)
  Receive Date: 20151031
  Receipt Date: 20151031
  Transmission Date: 20160304
  Serious: Yes (Disabling, Other)
  Sender: FDA-Public Use
  Company Number: CA-TEVA-603981ACC

PATIENT
  Age: 36 Year
  Sex: Female

DRUGS (3)
  1. CEPHALEXIN. [Concomitant]
     Active Substance: CEPHALEXIN
  2. CEFAZOLIN FOR INJECTION, USP [Suspect]
     Active Substance: CEFAZOLIN SODIUM
     Indication: SKIN INFECTION
     Dosage: 6 GRAM DAILY;
     Route: 042
  3. CEFTRIAXONE FOR INJECTION USP [Concomitant]
     Route: 030

REACTIONS (4)
  - Chest discomfort [Recovered/Resolved]
  - Dyspnoea [Recovered/Resolved]
  - Erythema [Recovered/Resolved]
  - Throat irritation [Recovered/Resolved]
